FAERS Safety Report 10227082 (Version 1)
Quarter: 2014Q2

REPORT INFORMATION
  Report Type: Spontaneous
  Country: None (occurrence: None)
  Receive Date: 20140609
  Receipt Date: 20140609
  Transmission Date: 20141212
  Serious: Yes (Other)
  Sender: FDA-Public Use
  Company Number: None

PATIENT
  Age: 63 Year
  Sex: Male
  Weight: 54.89 kg

DRUGS (1)
  1. ADCIRCA [Suspect]
     Indication: LIVER TRANSPLANT
     Route: 048
     Dates: start: 20140505

REACTIONS (4)
  - Abdominal distension [None]
  - Abdominal pain [None]
  - Headache [None]
  - Fluid retention [None]
